FAERS Safety Report 4813690-6 (Version None)
Quarter: 2005Q4

REPORT INFORMATION
  Report Type: 
  Country: None (occurrence: None)
  Receive Date: 20051028
  Receipt Date: 20050308
  Transmission Date: 20060501
  Serious: No
  Sender: FDA-Public Use
  Company Number: US-GLAXOSMITHKLINE-A0548855A

PATIENT
  Age: 57 Year
  Sex: Female

DRUGS (5)
  1. ADVAIR DISKUS 100/50 [Suspect]
     Indication: ASTHMA
     Dosage: 1PUFF TWICE PER DAY
     Route: 055
  2. ALLERGY INJECTIONS [Concomitant]
     Route: 065
  3. SINGULAIR [Concomitant]
  4. UNKNOWN MEDICATION [Concomitant]
     Route: 065
  5. IPRATROPIUM BROMIDE [Concomitant]
     Route: 065

REACTIONS (2)
  - ORAL DISCOMFORT [None]
  - WHEEZING [None]
